FAERS Safety Report 10517406 (Version 2)
Quarter: 2014Q4

REPORT INFORMATION
  Report Type: Spontaneous
  Country: US (occurrence: US)
  Receive Date: 20141014
  Receipt Date: 20141021
  Transmission Date: 20150528
  Serious: No
  Sender: FDA-Public Use
  Company Number: US-PFIZER INC-2014282154

PATIENT
  Age: 60 Year
  Sex: Female
  Weight: 96.15 kg

DRUGS (2)
  1. METHOTREXATE [Concomitant]
     Active Substance: METHOTREXATE
     Indication: ARTHRITIS
     Dosage: 15 G,WEEKLY (2.5MG 6 PILLS )
  2. XELJANZ [Suspect]
     Active Substance: TOFACITINIB CITRATE
     Indication: RHEUMATOID ARTHRITIS
     Dosage: 5 MG, 2X/DAY(AT MORNING AND NIGHT)
     Dates: start: 20140901, end: 20140920

REACTIONS (7)
  - Condition aggravated [Unknown]
  - Rhinorrhoea [Unknown]
  - Asthma [Unknown]
  - Abdominal pain upper [Unknown]
  - Wheezing [Unknown]
  - Cough [Unknown]
  - Pruritus [Unknown]
